FAERS Safety Report 9164433 (Version 1)
Quarter: 2013Q1

REPORT INFORMATION
  Report Type: Spontaneous
  Country: US (occurrence: None)
  Receive Date: 20130225
  Receipt Date: 20130225
  Transmission Date: 20140127
  Serious: Yes (Hospitalization)
  Sender: FDA-Public Use
  Company Number: UTC-026712

PATIENT
  Age: 74 Year
  Sex: Male
  Weight: 90.91 kg

DRUGS (3)
  1. TYVASO (6 MICROGRAM, AEROSOL FOR INHALATION) (TREPROSTINIL SODIUM) [Suspect]
     Indication: PULMONARY ARTERIAL HYPERTENSION
     Dosage: 4 IN 1 D
     Route: 055
     Dates: start: 20121107
  2. ADCIRCA (TADALAFIL) (UNKNOWN) [Concomitant]
  3. COUMADIN (WARFARIN SODIUM) (UNKNOWN) [Concomitant]

REACTIONS (2)
  - Diarrhoea [None]
  - Gastrointestinal disorder [None]
